FAERS Safety Report 7516961-8 (Version None)
Quarter: 2011Q2

REPORT INFORMATION
  Report Type: 
  Country: None (occurrence: None)
  Receive Date: 20110502
  Receipt Date: 20110210
  Transmission Date: 20111010
  Serious: Yes (Other)
  Sender: FDA-Public Use
  Company Number: AMAG201100024

PATIENT
  Age: 91 Year
  Sex: Male
  Weight: 69.4 kg

DRUGS (16)
  1. FERAHEME [Suspect]
     Indication: IRON DEFICIENCY ANAEMIA
     Dosage: 510 MG, SINGLE, INTRAVENOUS
     Route: 042
     Dates: start: 20110209, end: 20110209
  2. CREON [Concomitant]
  3. PERCOCET [Concomitant]
  4. FERROUS SULFATE TAB [Concomitant]
  5. NEURONTIN [Concomitant]
  6. DURA SULFATE [Concomitant]
  7. ASPIRIN [Concomitant]
  8. COLACE (DOCUSATE SODIUM) [Concomitant]
  9. METHADONE HCL (METHADONE HYDROCHLORIDE) [Concomitant]
  10. PAMELOR [Concomitant]
  11. SYNTHROID [Concomitant]
  12. CALAN [Concomitant]
  13. PROSCAR [Concomitant]
  14. ASCORBIC ACID [Concomitant]
  15. FLOMAX [Concomitant]
  16. TRENTAL [Concomitant]

REACTIONS (2)
  - HYPOTENSION [None]
  - MUSCULAR WEAKNESS [None]
